FAERS Safety Report 10231990 (Version 2)
Quarter: 2014Q2

REPORT INFORMATION
  Report Type: Spontaneous
  Country: US (occurrence: US)
  Receive Date: 20140612
  Receipt Date: 20140612
  Transmission Date: 20141212
  Serious: No
  Sender: FDA-Public Use
  Company Number: US-ASTRAZENECA-2014SE22048

PATIENT
  Age: 54 Year
  Sex: Male

DRUGS (1)
  1. SYMBICORT [Suspect]
     Dosage: 160/4.5 MCG TWO PUFFS BID
     Route: 055
     Dates: start: 201307

REACTIONS (3)
  - Malaise [Unknown]
  - General symptom [Unknown]
  - Device misuse [Unknown]
